FAERS Safety Report 17061262 (Version 1)
Quarter: 2019Q4

REPORT INFORMATION
  Report Type: Spontaneous
  Country: US (occurrence: US)
  Receive Date: 20191121
  Receipt Date: 20191121
  Transmission Date: 20200122
  Serious: No
  Sender: FDA-Public Use
  Company Number: US-ARRAY-2019-06461

PATIENT

DRUGS (4)
  1. MEKTOVI [Suspect]
     Active Substance: BINIMETINIB
     Indication: MALIGNANT MELANOMA
     Dosage: 45 MG, BID
     Route: 048
  2. BRAFTOVI [Suspect]
     Active Substance: ENCORAFENIB
     Indication: MALIGNANT MELANOMA
     Dosage: 450 MG, QD
     Route: 048
  3. MEKTOVI [Suspect]
     Active Substance: BINIMETINIB
     Indication: METASTASES TO CENTRAL NERVOUS SYSTEM
  4. BRAFTOVI [Suspect]
     Active Substance: ENCORAFENIB
     Indication: METASTASES TO CENTRAL NERVOUS SYSTEM

REACTIONS (1)
  - Pruritus [Unknown]

NARRATIVE: CASE EVENT DATE: 201910
